FAERS Safety Report 5155934-X (Version None)
Quarter: 2006Q4

REPORT INFORMATION
  Report Type: 
  Country: None (occurrence: None)
  Receive Date: 20061122
  Receipt Date: 20061113
  Transmission Date: 20070319
  Serious: Yes (Hospitalization)
  Sender: FDA-Public Use
  Company Number: US-ABBOTT-06P-163-0350120-00

PATIENT
  Sex: Female
  Weight: 88.53 kg

DRUGS (12)
  1. HUMIRA [Suspect]
     Indication: RHEUMATOID ARTHRITIS
     Route: 058
     Dates: start: 20060516, end: 20061024
  2. HUMIRA [Suspect]
     Route: 058
  3. CARVEDILOL [Concomitant]
     Indication: CARDIAC DISORDER
  4. GLYCERYL TRINITRATE [Concomitant]
     Indication: CARDIAC DISORDER
  5. SERETIDE MITE [Concomitant]
     Indication: DRUG USE FOR UNKNOWN INDICATION
  6. LEVOTHYROXINE SODIUM [Concomitant]
     Indication: DRUG USE FOR UNKNOWN INDICATION
  7. GLIPIZIDE [Concomitant]
     Indication: BLOOD GLUCOSE ABNORMAL
  8. ENALAPRIL MALEATE [Concomitant]
     Indication: BLOOD DISORDER
  9. METFORMIN [Concomitant]
     Indication: BLOOD GLUCOSE ABNORMAL
  10. PREDNISONE TAB [Concomitant]
     Indication: RHEUMATOID ARTHRITIS
  11. LANSOPRAZOLE [Concomitant]
     Indication: GASTRIC DISORDER
  12. MESALAZINE [Concomitant]
     Indication: COLITIS

REACTIONS (4)
  - ARTHRITIS INFECTIVE [None]
  - DRUG INEFFECTIVE [None]
  - INJECTION SITE REACTION [None]
  - PULMONARY EMBOLISM [None]
